FAERS Safety Report 9115581 (Version 1)
Quarter: 2013Q1

REPORT INFORMATION
  Report Type: Spontaneous
  Country: US (occurrence: US)
  Receive Date: 20130225
  Receipt Date: 20130225
  Transmission Date: 20140127
  Serious: Yes (Other)
  Sender: FDA-Public Use
  Company Number: US-PFIZER INC-2013067662

PATIENT
  Age: 62 Year
  Sex: Male
  Weight: 109 kg

DRUGS (2)
  1. GABAPENTIN [Suspect]
     Indication: NEUROPATHY PERIPHERAL
     Dosage: 1200 MG (TWO TABLETS OF 600MG), 3X/DAY
     Route: 048
  2. HYDROCORTISONE [Concomitant]
     Dosage: UNK

REACTIONS (4)
  - Polyneuropathy [Unknown]
  - Memory impairment [Unknown]
  - Drug ineffective [Unknown]
  - Therapeutic response unexpected [Unknown]
